FAERS Safety Report 8384115-1 (Version None)
Quarter: 2012Q2

REPORT INFORMATION
  Report Type: 
  Country: None (occurrence: None)
  Receive Date: 20120524
  Receipt Date: 20120514
  Transmission Date: 20120825
  Serious: Yes (Other)
  Sender: FDA-Public Use
  Company Number: AU-ROCHE-1068990

PATIENT
  Sex: Female

DRUGS (5)
  1. ARAVA [Concomitant]
  2. OSTEOEZE [Concomitant]
  3. PANTOPRAZOLE SODIUM [Concomitant]
  4. ACTEMRA [Suspect]
     Indication: RHEUMATOID ARTHRITIS
  5. ACETAMINOPHEN [Concomitant]

REACTIONS (1)
  - ARTHRALGIA [None]
